FAERS Safety Report 21559041 (Version 1)
Quarter: 2022Q4

REPORT INFORMATION
  Report Type: Spontaneous
  Country: US (occurrence: None)
  Receive Date: 20221104
  Receipt Date: 20221104
  Transmission Date: 20230113
  Serious: No
  Sender: FDA-Public Use
  Company Number: None

PATIENT
  Sex: Female

DRUGS (1)
  1. OPSUMIT [Suspect]
     Active Substance: MACITENTAN
     Indication: Pulmonary arterial hypertension
     Dosage: FREQUENCY : DAILY;?
     Route: 048
     Dates: start: 20190911

REACTIONS (6)
  - COVID-19 [None]
  - Blood iron decreased [None]
  - Product dose omission issue [None]
  - Secretion discharge [None]
  - Nasal congestion [None]
  - Sensitivity to weather change [None]
